FAERS Safety Report 8585542-X (Version None)
Quarter: 2012Q3

REPORT INFORMATION
  Report Type: 
  Country: None (occurrence: None)
  Receive Date: 20120810
  Receipt Date: 20120731
  Transmission Date: 20120928
  Serious: Yes (Hospitalization)
  Sender: FDA-Public Use
  Company Number: US-ELI_LILLY_AND_COMPANY-US201204000407

PATIENT
  Sex: Female

DRUGS (2)
  1. FORTEO [Suspect]
     Indication: OSTEOPOROSIS
     Dosage: 20 UG, QD
     Route: 058
     Dates: start: 20120301
  2. CYMBALTA [Suspect]
     Indication: NEUROPATHY PERIPHERAL
     Dosage: UNK, UNKNOWN

REACTIONS (8)
  - OROPHARYNGEAL PAIN [None]
  - DRUG DOSE OMISSION [None]
  - FEAR [None]
  - HOT FLUSH [None]
  - DRUG HYPERSENSITIVITY [None]
  - MALAISE [None]
  - COUGH [None]
  - BRONCHIAL DISORDER [None]
